FAERS Safety Report 15244382 (Version 1)
Quarter: 2018Q3

REPORT INFORMATION
  Report Type: Spontaneous
  Country: US (occurrence: US)
  Receive Date: 20180806
  Receipt Date: 20180806
  Transmission Date: 20181010
  Serious: No
  Sender: FDA-Public Use
  Company Number: US-ABBVIE-18K-163-2382425-00

PATIENT
  Age: 40 Year
  Sex: Female

DRUGS (1)
  1. MAVYRET [Suspect]
     Active Substance: GLECAPREVIR\PIBRENTASVIR
     Indication: HEPATITIS C
     Route: 048

REACTIONS (8)
  - Vision blurred [Unknown]
  - Auditory disorder [Recovered/Resolved]
  - Euphoric mood [Unknown]
  - Visual acuity reduced [Unknown]
  - Emotional distress [Unknown]
  - Photophobia [Unknown]
  - Optic nerve disorder [Unknown]
  - Cardiac disorder [Unknown]
